FAERS Safety Report 9403431 (Version 1)
Quarter: 2013Q3

REPORT INFORMATION
  Report Type: Spontaneous
  Country: DE (occurrence: DE)
  Receive Date: 20130716
  Receipt Date: 20130716
  Transmission Date: 20140515
  Serious: Yes (Hospitalization)
  Sender: FDA-Public Use
  Company Number: DE-B.I. PHARMACEUTICALS,INC./RIDGEFIELD-2012-DE-00827DE

PATIENT
  Age: 77 Year
  Sex: Male
  Weight: 98 kg

DRUGS (3)
  1. TWYNSTA [Suspect]
     Indication: INTERMITTENT CLAUDICATION
     Dosage: 40 MG/10 MG
     Route: 048
     Dates: start: 2012
  2. TWYNSTA [Suspect]
     Indication: HYPERTENSION
     Dosage: 40 MG/10 MG
     Route: 048
  3. ACETYLSALICYLIC ACID [Concomitant]
     Dosage: PRN
     Route: 048

REACTIONS (8)
  - Phimosis [Unknown]
  - Fatigue [Unknown]
  - Headache [Unknown]
  - General physical health deterioration [Unknown]
  - Drug ineffective [Unknown]
  - Dysuria [Unknown]
  - Genital erosion [Unknown]
  - Genital burning sensation [Unknown]
